FAERS Safety Report 10133612 (Version 1)
Quarter: 2014Q2

REPORT INFORMATION
  Report Type: Spontaneous
  Country: GB (occurrence: GB)
  Receive Date: 20140428
  Receipt Date: 20140428
  Transmission Date: 20141212
  Serious: Yes (Other)
  Sender: FDA-Public Use
  Company Number: GB-GLAXOSMITHKLINE-B0988060A

PATIENT
  Age: 62 Year
  Sex: Female

DRUGS (1)
  1. TROBALT [Suspect]
     Indication: EPILEPSY
     Dates: start: 201208

REACTIONS (5)
  - Convulsion [Unknown]
  - Hallucination [Unknown]
  - Fear [Unknown]
  - Abnormal behaviour [Unknown]
  - Drug ineffective [Unknown]
